FAERS Safety Report 14081667 (Version 1)
Quarter: 2017Q4

REPORT INFORMATION
  Report Type: Report from Study
  Country: US (occurrence: US)
  Receive Date: 20171013
  Receipt Date: 20171013
  Transmission Date: 20180321
  Serious: Yes (Disabling)
  Sender: FDA-Public Use
  Company Number: US-EISAI MEDICAL RESEARCH-EC-2017-029883

PATIENT
  Age: 67 Year
  Sex: Female
  Weight: 66 kg

DRUGS (30)
  1. LENVIMA [Suspect]
     Active Substance: LENVATINIB
     Indication: RENAL CANCER
     Route: 048
     Dates: start: 20170724, end: 201708
  2. LENVIMA [Suspect]
     Active Substance: LENVATINIB
     Dosage: 4 MG 2 DAYS ON THEN 3 DAYS OFF.
     Route: 048
     Dates: start: 201709, end: 2017
  3. SUDAFED [Concomitant]
     Active Substance: PSEUDOEPHEDRINE HYDROCHLORIDE
  4. LISINOPRIL. [Concomitant]
     Active Substance: LISINOPRIL
  5. KLOR-CON [Concomitant]
     Active Substance: POTASSIUM CHLORIDE
  6. NEXAVAR [Concomitant]
     Active Substance: SORAFENIB
  7. LENVIMA [Suspect]
     Active Substance: LENVATINIB
     Route: 048
     Dates: start: 201708, end: 201709
  8. MAGNESIUM [Concomitant]
     Active Substance: MAGNESIUM
  9. ALPRAZOLAM. [Concomitant]
     Active Substance: ALPRAZOLAM
  10. METOPROLOL. [Concomitant]
     Active Substance: METOPROLOL
  11. AMLODIPINE [Concomitant]
     Active Substance: AMLODIPINE BESYLATE
  12. CARISOPRODOL. [Concomitant]
     Active Substance: CARISOPRODOL
  13. CABOMETYX [Concomitant]
     Active Substance: CABOZANTINIB S-MALATE
  14. ZOFRAN [Concomitant]
     Active Substance: ONDANSETRON HYDROCHLORIDE
  15. RISPERDAL [Concomitant]
     Active Substance: RISPERIDONE
  16. LENVIMA [Suspect]
     Active Substance: LENVATINIB
     Route: 048
     Dates: start: 201709, end: 2017
  17. BUSPIRONE [Concomitant]
     Active Substance: BUSPIRONE HYDROCHLORIDE
  18. SUTENT [Concomitant]
     Active Substance: SUNITINIB MALATE
  19. MS CONTIN [Concomitant]
     Active Substance: MORPHINE SULFATE
  20. PROMETHAZINE [Concomitant]
     Active Substance: PROMETHAZINE\PROMETHAZINE HYDROCHLORIDE
  21. IBUPROFEN. [Concomitant]
     Active Substance: IBUPROFEN
  22. EMLA [Concomitant]
     Active Substance: LIDOCAINE\PRILOCAINE
  23. ONDANSETRON [Concomitant]
     Active Substance: ONDANSETRON
  24. NORVASC [Concomitant]
     Active Substance: AMLODIPINE BESYLATE
  25. ZANTAC [Concomitant]
     Active Substance: RANITIDINE HYDROCHLORIDE
  26. MULTIVITAMIN [Concomitant]
     Active Substance: VITAMINS
  27. HYDROCODONE-ACETAMINOPHEN [Concomitant]
     Active Substance: ACETAMINOPHEN\HYDROCODONE
  28. CALCIUM [Concomitant]
     Active Substance: CALCIUM
  29. DRONABINOL. [Concomitant]
     Active Substance: DRONABINOL
  30. XANAX [Concomitant]
     Active Substance: ALPRAZOLAM

REACTIONS (11)
  - Heart rate increased [Unknown]
  - Sleep disorder [Not Recovered/Not Resolved]
  - Blood pressure increased [Recovering/Resolving]
  - Vomiting [Unknown]
  - Joint swelling [Unknown]
  - Migraine [Not Recovered/Not Resolved]
  - Abdominal pain [Unknown]
  - Muscle spasms [Unknown]
  - Nausea [Unknown]
  - Peripheral swelling [Not Recovered/Not Resolved]
  - Vision blurred [Not Recovered/Not Resolved]

NARRATIVE: CASE EVENT DATE: 2017
